FAERS Safety Report 9344443 (Version 2)
Quarter: 2013Q2

REPORT INFORMATION
  Report Type: Spontaneous
  Country: US (occurrence: US)
  Receive Date: 20130612
  Receipt Date: 20130613
  Transmission Date: 20140414
  Serious: Yes (Life-Threatening, Hospitalization, Disabling)
  Sender: FDA-Public Use
  Company Number: PHEH2013US012455

PATIENT
  Sex: Female

DRUGS (1)
  1. TEGRETOL [Suspect]
     Dosage: 200 MG, BID

REACTIONS (5)
  - Amnesia [Unknown]
  - Pain [Unknown]
  - Abnormal behaviour [Unknown]
  - Condition aggravated [Unknown]
  - Drug ineffective [Unknown]
